FAERS Safety Report 6846234-8 (Version None)
Quarter: 2010Q3

REPORT INFORMATION
  Report Type: 
  Country: None (occurrence: None)
  Receive Date: 20100715
  Receipt Date: 20070925
  Transmission Date: 20110219
  Serious: No
  Sender: FDA-Public Use
  Company Number: US-PFIZER INC-2007076878

PATIENT
  Sex: Female
  Weight: 59 kg

DRUGS (6)
  1. CHANTIX [Suspect]
     Indication: SMOKING CESSATION THERAPY
     Dates: start: 20070123
  2. LIPITOR [Concomitant]
  3. POTASSIUM CHLORIDE [Concomitant]
  4. HYDROCHLOROTHIAZIDE [Concomitant]
  5. ZOLOFT [Concomitant]
  6. ACETYLSALICYLIC ACID [Concomitant]

REACTIONS (1)
  - NAUSEA [None]
